FAERS Safety Report 6374481-0 (Version None)
Quarter: 2009Q3

REPORT INFORMATION
  Report Type: 
  Country: None (occurrence: None)
  Receive Date: 20090924
  Receipt Date: 20090915
  Transmission Date: 20100115
  Serious: Yes (Other)
  Sender: FDA-Public Use
  Company Number: IN-ASTRAZENECA-2009SE13414

PATIENT
  Age: 28 Year
  Sex: Female

DRUGS (2)
  1. BUPIVACAINE [Suspect]
  2. FENTANYL TRANSDERMAL SYSTEM [Suspect]

REACTIONS (1)
  - MENINGITIS CHEMICAL [None]
